FAERS Safety Report 15499534 (Version 2)
Quarter: 2018Q4

REPORT INFORMATION
  Report Type: Spontaneous
  Country: DE (occurrence: DE)
  Receive Date: 20181015
  Receipt Date: 20181130
  Transmission Date: 20190205
  Serious: Yes (Hospitalization, Other)
  Sender: FDA-Public Use
  Company Number: DE-JNJFOC-20180936842

PATIENT
  Age: 80 Year
  Sex: Female
  Weight: 53 kg

DRUGS (4)
  1. AMIODARONE HYDROCHLORIDE. [Concomitant]
     Active Substance: AMIODARONE HYDROCHLORIDE
     Route: 065
  2. XARELTO [Suspect]
     Active Substance: RIVAROXABAN
     Indication: ATRIAL FIBRILLATION
     Route: 048
     Dates: start: 2017
  3. RAMIPRIL. [Concomitant]
     Active Substance: RAMIPRIL
     Indication: HYPERTENSION
     Route: 065
  4. BISOPROLOL [Concomitant]
     Active Substance: BISOPROLOL
     Indication: HYPERTENSION
     Route: 065

REACTIONS (10)
  - Procedural haemorrhage [Unknown]
  - Vertigo [Unknown]
  - Blood pressure increased [Unknown]
  - Haematoma [Unknown]
  - Blood urine present [Unknown]
  - Epistaxis [Unknown]
  - Tooth deposit [Unknown]
  - Post procedural haematoma [Unknown]
  - Vitiligo [Not Recovered/Not Resolved]
  - Gingival bleeding [Unknown]

NARRATIVE: CASE EVENT DATE: 2017
